FAERS Safety Report 6402575-X (Version None)
Quarter: 2009Q4

REPORT INFORMATION
  Report Type: 
  Country: None (occurrence: None)
  Receive Date: 20091015
  Receipt Date: 20090930
  Transmission Date: 20100525
  Serious: Yes (Hospitalization)
  Sender: FDA-Public Use
  Company Number: JP-MERCK-0910USA00508

PATIENT
  Age: 56 Year
  Sex: Male

DRUGS (3)
  1. COZAAR [Suspect]
     Indication: BLOOD URIC ACID INCREASED
     Route: 048
     Dates: start: 20090807, end: 20090810
  2. CALBLOCK [Concomitant]
     Indication: HYPERTENSION
     Route: 048
  3. PRAVASTATIN SODIUM [Concomitant]
     Indication: DYSLIPIDAEMIA
     Route: 048

REACTIONS (3)
  - DRUG ERUPTION [None]
  - OEDEMA [None]
  - SWELLING [None]
